FAERS Safety Report 21135448 (Version 2)
Quarter: 2022Q4

REPORT INFORMATION
  Report Type: Spontaneous
  Country: US (occurrence: US)
  Receive Date: 20220727
  Receipt Date: 20221108
  Transmission Date: 20230112
  Serious: Yes (Death)
  Sender: FDA-Public Use
  Company Number: US-GLAND PHARMA LIMITED-2022US003697

PATIENT
  Age: 72 Year
  Sex: Male

DRUGS (2)
  1. DEFEROXAMINE MESYLATE [Suspect]
     Active Substance: DEFEROXAMINE MESYLATE
     Indication: Iron overload
     Dosage: UNK
     Route: 065
  2. IRON [Concomitant]
     Active Substance: IRON
     Indication: Myelodysplastic syndrome
     Dosage: UNK (TRANSFUSION)
     Route: 065

REACTIONS (1)
  - Mucormycosis [Fatal]
